FAERS Safety Report 8519958-4 (Version None)
Quarter: 2012Q3

REPORT INFORMATION
  Report Type: 
  Country: None (occurrence: None)
  Receive Date: 20120719
  Receipt Date: 20120716
  Transmission Date: 20120928
  Serious: Yes (Other)
  Sender: FDA-Public Use
  Company Number: US-SHIRE-ALL1-2012-02551

PATIENT
  Sex: Female
  Weight: 27.211 kg

DRUGS (2)
  1. INTUNIV [Suspect]
     Indication: MOOD ALTERED
     Dosage: 1 MG, 1X/DAY:QD
     Route: 048
     Dates: start: 20110301, end: 20120227
  2. INTUNIV [Suspect]
     Indication: FATIGUE

REACTIONS (4)
  - PALPITATIONS [None]
  - DIZZINESS [None]
  - OFF LABEL USE [None]
  - SYNCOPE [None]
